FAERS Safety Report 7791636-9 (Version None)
Quarter: 2011Q4

REPORT INFORMATION
  Report Type: 
  Country: None (occurrence: None)
  Receive Date: 20111003
  Receipt Date: 20110919
  Transmission Date: 20120403
  Serious: No
  Sender: FDA-Public Use
  Company Number: MX-ELI_LILLY_AND_COMPANY-MX201105001799

PATIENT
  Age: 71 Year
  Sex: Female
  Weight: 72 kg

DRUGS (7)
  1. CALCIUM CARBONATE [Concomitant]
     Indication: BONE DISORDER
  2. TEMISARTAN [Concomitant]
     Indication: BLOOD PRESSURE
     Dosage: 80 MG, UNK
  3. LOVAZA [Concomitant]
  4. OMEPRAZOLE [Concomitant]
     Indication: GASTROINTESTINAL DISORDER
  5. FORTEO [Suspect]
     Indication: OSTEOPOROSIS
     Dosage: 20 UG, QD
     Route: 058
     Dates: start: 20110413, end: 20110101
  6. FORTEO [Suspect]
     Dosage: 20 UG, QD
     Route: 058
     Dates: start: 20110101
  7. GARLIC [Concomitant]
     Dosage: 1 DF, UNK

REACTIONS (6)
  - INFLAMMATION [None]
  - LIMB DISCOMFORT [None]
  - INJECTION SITE HAEMATOMA [None]
  - INJECTION SITE PAIN [None]
  - BURNING SENSATION [None]
  - ARTHRALGIA [None]
